FAERS Safety Report 24740240 (Version 2)
Quarter: 2025Q1

REPORT INFORMATION
  Report Type: Spontaneous
  Country: GR (occurrence: GR)
  Receive Date: 20241216
  Receipt Date: 20250109
  Transmission Date: 20250408
  Serious: No
  Sender: JOHNSON AND JOHNSON
  Company Number: GR-JNJFOC-20241200857

PATIENT
  Sex: Female

DRUGS (4)
  1. SIMPONI [Suspect]
     Active Substance: GOLIMUMAB
     Indication: Product used for unknown indication
     Dosage: STRENGTH- 50.00 MG / 0.50 ML
     Route: 058
  2. SIMPONI [Suspect]
     Active Substance: GOLIMUMAB
     Dosage: STRENGTH- 50.00 MG / 0.50 ML
     Route: 058
  3. SIMPONI [Suspect]
     Active Substance: GOLIMUMAB
     Indication: Product used for unknown indication
     Dosage: STRENGTH- UNKNOWN
     Route: 058
  4. SIMPONI [Suspect]
     Active Substance: GOLIMUMAB
     Dosage: STRENGTH- UNKNOWN
     Route: 058

REACTIONS (4)
  - Device occlusion [Unknown]
  - Product dose omission issue [Unknown]
  - Off label use [Unknown]
  - Device failure [Unknown]

NARRATIVE: CASE EVENT DATE: 20241115
